FAERS Safety Report 7693507-5 (Version None)
Quarter: 2011Q3

REPORT INFORMATION
  Report Type: 
  Country: None (occurrence: None)
  Receive Date: 20110819
  Receipt Date: 20110819
  Transmission Date: 20111222
  Serious: Yes (Other)
  Sender: FDA-Public Use
  Company Number: None

PATIENT
  Age: 84 Year
  Sex: Female
  Weight: 81.646 kg

DRUGS (1)
  1. CARVEDILOL [Suspect]
     Indication: HYPERTENSION
     Dosage: 1 TAB
     Route: 048
     Dates: start: 20110812, end: 20110818

REACTIONS (9)
  - BLOOD GLUCOSE INCREASED [None]
  - HEART RATE IRREGULAR [None]
  - SOMNOLENCE [None]
  - DIZZINESS [None]
  - ABDOMINAL PAIN [None]
  - HYPERTENSION [None]
  - CHEST PAIN [None]
  - VISION BLURRED [None]
  - MUSCULAR WEAKNESS [None]
